FAERS Safety Report 22218679 (Version 1)
Quarter: 2023Q2

REPORT INFORMATION
  Report Type: Spontaneous
  Country: GB (occurrence: GB)
  Receive Date: 20230417
  Receipt Date: 20230417
  Transmission Date: 20230722
  Serious: Yes (Life-Threatening, Other)
  Sender: FDA-Public Use
  Company Number: GB-MHRA-MED-202304131206289450-JQCKH

PATIENT
  Age: 80 Year

DRUGS (4)
  1. ADALIMUMAB [Suspect]
     Active Substance: ADALIMUMAB
     Indication: Colitis ulcerative
     Dosage: 160 MILLIGRAM WEEK 0, 80 MG SC WEEK 2 THEN STOPPED
     Route: 058
     Dates: start: 20220105, end: 20220119
  2. METHOTREXATE [Suspect]
     Active Substance: METHOTREXATE
     Indication: Colitis ulcerative
     Dosage: 25 MILLIGRAM, QW (25MG ONCE A WEEK)
     Route: 065
     Dates: start: 20220719, end: 20221201
  3. USTEKINUMAB [Suspect]
     Active Substance: USTEKINUMAB
     Indication: Colitis ulcerative
     Dosage: 90 MILLIGRAM (90MG SC 12 WEEKLY)
     Route: 058
     Dates: start: 20220902, end: 20230404
  4. VEDOLIZUMAB [Suspect]
     Active Substance: VEDOLIZUMAB
     Indication: Colitis ulcerative
     Dosage: 300 MILLIGRAM (300MG IV 8 WEEKLY)
     Route: 042
     Dates: start: 20210201, end: 20211101

REACTIONS (1)
  - Glioblastoma [Not Recovered/Not Resolved]

NARRATIVE: CASE EVENT DATE: 20230306
